FAERS Safety Report 11703338 (Version 2)
Quarter: 2016Q1

REPORT INFORMATION
  Report Type: Spontaneous
  Country: DE (occurrence: DE)
  Receive Date: 20151105
  Receipt Date: 20160122
  Transmission Date: 20160525
  Serious: Yes (Hospitalization)
  Sender: FDA-Public Use
  Company Number: DE-ELI_LILLY_AND_COMPANY-DE201510009994

PATIENT
  Sex: Female

DRUGS (19)
  1. FORSTEO [Suspect]
     Active Substance: TERIPARATIDE
     Dosage: 20 UG, UNKNOWN
     Route: 058
  2. JANUVIA [Concomitant]
     Active Substance: SITAGLIPTIN PHOSPHATE
     Dosage: 100 MG, QD
     Route: 065
  3. APONAL [Concomitant]
     Active Substance: DOXEPIN HYDROCHLORIDE
     Dosage: 100 MG, EACH EVENING
     Route: 065
  4. CITALOPRAM [Concomitant]
     Active Substance: CITALOPRAM HYDROBROMIDE
     Dosage: 20 MG, EACH MORNING
     Route: 065
  5. ASPIRIN. [Concomitant]
     Active Substance: ASPIRIN
     Dosage: 100 MG, EACH MORNING
     Route: 065
  6. OMEPRAZOL                          /00661201/ [Concomitant]
     Active Substance: OMEPRAZOLE
     Dosage: 40 MG, EACH MORNING
     Route: 065
  7. EXFORGE [Concomitant]
     Active Substance: AMLODIPINE BESYLATE\VALSARTAN
     Dosage: UNK, EACH MORNING
     Route: 065
  8. HYDROCHLOROTHIAZID [Concomitant]
     Active Substance: HYDROCHLOROTHIAZIDE
     Dosage: 25 MG, QD
     Route: 065
  9. L-THYROX [Concomitant]
     Active Substance: LEVOTHYROXINE SODIUM
     Dosage: 25 UG, EACH MORNING
     Route: 065
  10. RESTEX [Concomitant]
     Active Substance: BENSERAZIDE
     Dosage: UNK, EACH EVENING
     Route: 065
  11. SIMVAHEXAL [Concomitant]
     Active Substance: SIMVASTATIN
     Dosage: 10 MG, EACH EVENING
     Route: 065
  12. LYRICA [Concomitant]
     Active Substance: PREGABALIN
     Dosage: 75 MG, BID
     Route: 065
  13. INDOMETACIN [Concomitant]
     Active Substance: INDOMETHACIN
     Dosage: 50 MG, TID
     Route: 065
  14. DEKRISTOL [Concomitant]
     Active Substance: CHOLECALCIFEROL
     Dosage: UNK, WEEKLY (1/W)
     Route: 065
  15. FORSTEO [Suspect]
     Active Substance: TERIPARATIDE
     Indication: OSTEOPOROSIS
     Dosage: 20 UG, QD
     Route: 058
     Dates: start: 20150917, end: 20151023
  16. BISOHEXAL [Concomitant]
     Active Substance: BISOPROLOL FUMARATE
     Dosage: 5 MG, QD
     Route: 065
  17. METAMIZOL                          /06276704/ [Concomitant]
     Dosage: 500 MG, TID
     Route: 065
  18. DUROGESIC [Concomitant]
     Active Substance: FENTANYL
     Dosage: UNK, 2/W
     Route: 065
  19. MONO EMBOLEX [Concomitant]
     Active Substance: CERTOPARIN SODIUM
     Dosage: UNK, UNKNOWN
     Route: 065

REACTIONS (3)
  - Atypical femur fracture [Not Recovered/Not Resolved]
  - Pain in extremity [Not Recovered/Not Resolved]
  - Complication associated with device [Not Recovered/Not Resolved]

NARRATIVE: CASE EVENT DATE: 201509
